FAERS Safety Report 7781812-3 (Version None)
Quarter: 2011Q3

REPORT INFORMATION
  Report Type: 
  Country: None (occurrence: None)
  Receive Date: 20110927
  Receipt Date: 20110919
  Transmission Date: 20111222
  Serious: Yes (Death, Congenital Anomaly)
  Sender: FDA-Public Use
  Company Number: DK-GLAXOSMITHKLINE-B0750263A

PATIENT

DRUGS (1)
  1. ONDANSETRON [Suspect]
     Indication: NAUSEA
     Route: 064
     Dates: start: 20060806, end: 20060101

REACTIONS (2)
  - ANENCEPHALY [None]
  - MATERNAL EXPOSURE DURING PREGNANCY [None]
